FAERS Safety Report 9591870 (Version 2)
Quarter: 2013Q4

REPORT INFORMATION
  Report Type: Spontaneous
  Country: US (occurrence: US)
  Receive Date: 20131004
  Receipt Date: 20131004
  Transmission Date: 20140711
  Serious: No
  Sender: FDA-Public Use
  Company Number: US-AMGEN-USASP2012080728

PATIENT
  Age: 45 Year
  Sex: Female
  Weight: 90.7 kg

DRUGS (3)
  1. ENBREL [Suspect]
     Indication: RHEUMATOID ARTHRITIS
     Dosage: 50 MG, QWK
     Route: 058
  2. LANSOPRAZOLE [Concomitant]
     Dosage: 15 MG, DR UNK
  3. COLCRYS [Concomitant]
     Dosage: 0.6 MG, UNK

REACTIONS (4)
  - Nausea [Unknown]
  - Diarrhoea [Unknown]
  - Injection site reaction [Unknown]
  - Injection site erythema [Unknown]
